FAERS Safety Report 21557787 (Version 1)
Quarter: 2022Q4

REPORT INFORMATION
  Report Type: Spontaneous
  Country: US (occurrence: None)
  Receive Date: 20221103
  Receipt Date: 20221103
  Transmission Date: 20230113
  Serious: Yes (Hospitalization)
  Sender: FDA-Public Use
  Company Number: None

PATIENT
  Sex: Male

DRUGS (2)
  1. EVEROLIMUS [Suspect]
     Active Substance: EVEROLIMUS
     Dosage: 5MG DAILY ORAL?
     Route: 048
  2. LENVIMA [Concomitant]
     Active Substance: LENVATINIB

REACTIONS (4)
  - Dyspnoea [None]
  - Back pain [None]
  - Chest pain [None]
  - Therapy interrupted [None]
